FAERS Safety Report 5715014-9 (Version None)
Quarter: 2008Q2

REPORT INFORMATION
  Report Type: 
  Country: None (occurrence: None)
  Receive Date: 20080423
  Receipt Date: 20080415
  Transmission Date: 20081010
  Serious: Yes (Hospitalization, Other)
  Sender: FDA-Public Use
  Company Number: PHHO2006AR21667

PATIENT
  Age: 52 Year
  Sex: Female
  Weight: 50 kg

DRUGS (1)
  1. GLEEVEC [Suspect]
     Indication: CHRONIC MYELOID LEUKAEMIA
     Dosage: 800 MG, QD
     Route: 048
     Dates: start: 20061120, end: 20061217

REACTIONS (13)
  - ABDOMINAL PAIN UPPER [None]
  - ANAEMIA [None]
  - ASPIRATION PLEURAL CAVITY [None]
  - CHOLECYSTITIS [None]
  - FEBRILE NEUTROPENIA [None]
  - HEADACHE [None]
  - HYPOKALAEMIA [None]
  - NEUTROPENIA [None]
  - PETECHIAE [None]
  - PLEURAL EFFUSION [None]
  - PNEUMONIA [None]
  - PYREXIA [None]
  - THROMBOCYTOPENIA [None]
